FAERS Safety Report 8559023-3 (Version None)
Quarter: 2012Q3

REPORT INFORMATION
  Report Type: 
  Country: None (occurrence: None)
  Receive Date: 20120802
  Receipt Date: 20120725
  Transmission Date: 20120928
  Serious: Yes (Hospitalization, Other)
  Sender: FDA-Public Use
  Company Number: US-BIOGENIDEC-2012BI027327

PATIENT
  Age: 47 Year
  Sex: Female

DRUGS (3)
  1. AVONEX [Suspect]
     Route: 030
     Dates: start: 19980601
  2. AVONEX [Suspect]
     Route: 030
     Dates: start: 20120719
  3. AVONEX [Suspect]
     Indication: MULTIPLE SCLEROSIS
     Route: 030

REACTIONS (2)
  - INTESTINAL OBSTRUCTION [None]
  - LARGE INTESTINE ANASTOMOSIS [None]
